FAERS Safety Report 21651343 (Version 1)
Quarter: 2022Q4

REPORT INFORMATION
  Report Type: Spontaneous
  Country: CH (occurrence: CH)
  Receive Date: 20221128
  Receipt Date: 20221128
  Transmission Date: 20230113
  Serious: Yes (Hospitalization, Other)
  Sender: FDA-Public Use
  Company Number: CH-SM-2022-16924

PATIENT
  Age: 42 Year
  Sex: Male

DRUGS (22)
  1. SPIRIVA [Suspect]
     Active Substance: TIOTROPIUM BROMIDE MONOHYDRATE
     Indication: Product used for unknown indication
     Dosage: SPIRIVA? RESPIMAT? (TIOTROPIUM) 2.5MCG 1-0-1-0 INHALATION, BEGINN IM FR?HLING 2022 (GENAUES DATUM...
     Route: 055
     Dates: start: 202204, end: 202205
  2. SPIRIVA [Suspect]
     Active Substance: TIOTROPIUM BROMIDE MONOHYDRATE
     Dosage: SPIRIVA? RESPIMAT? (TIOTROPIUM) 2.5MCG 1-0-1-0 INHALATION, BEGINN IM FR?HLING 2022 (GENAUES DATUM...
     Route: 055
     Dates: start: 202205
  3. MIRTAZAPINE [Suspect]
     Active Substance: MIRTAZAPINE
     Indication: Product used for unknown indication
     Dosage: MIRTAZAPIN-MEPHA? (MIRTAZAPIN) 45 MG ORALE EINNAHME 0-0-0-1, SEIT UNBEKANNTEM ZEITPUNKT BIS AM 27...
     Route: 048
     Dates: end: 20220527
  4. PANTOPRAZOLE SODIUM [Suspect]
     Active Substance: PANTOPRAZOLE SODIUM
     Indication: Product used for unknown indication
     Dosage: PANTOPRAZOL MEPHA? 40MG ORALE EINNAHME 1-0-0-0 SEIT UNBEKANNTEM ZEITPUNKT BIS AM 27.05.2022
     Route: 048
     Dates: end: 20220527
  5. GILENYA [Suspect]
     Active Substance: FINGOLIMOD HYDROCHLORIDE
     Indication: Multiple sclerosis
     Dosage: GILENYA? (FINGOLIMOD) 0.5MG ORALE EINNAHME SEIT 2014, PAUSIERT SEIT 19.05.22, WIEDERBEGINN AM 29....
     Route: 048
     Dates: start: 2014, end: 20220519
  6. GILENYA [Suspect]
     Active Substance: FINGOLIMOD HYDROCHLORIDE
     Dosage: GILENYA? (FINGOLIMOD) 0.5MG ORALE EINNAHME SEIT 2014, PAUSIERT SEIT 19.05.22, WIEDERBEGINN AM 29....
     Route: 048
     Dates: start: 20220529
  7. PRAMIPEXOLE [Concomitant]
     Active Substance: PRAMIPEXOLE
     Indication: Product used for unknown indication
     Dosage: SIFROL? (PRAMIPEXOL) 0.25MG 0-0-0-1
     Route: 048
  8. Mucofluid [Concomitant]
     Indication: Product used for unknown indication
     Dosage: MUCOFLUID? (ACETYLCYSTEIN) 600MG 1-0-0-0
     Route: 048
  9. TIZANIDINE [Concomitant]
     Active Substance: TIZANIDINE
     Indication: Product used for unknown indication
     Dosage: SIRDALUD? (TIZANIDIN) 4MG 0-0-1-0
     Route: 048
  10. FLUTICASONE FUROATE\VILANTEROL TRIFENATATE [Concomitant]
     Active Substance: FLUTICASONE FUROATE\VILANTEROL TRIFENATATE
     Indication: Product used for unknown indication
     Dosage: RELVAR? ELLIPTA? (VILANTEROL/FLUTICASON) 184 / 22 MCG INDIVIDUELL INHALATION ; AS NECESSARY
     Route: 055
  11. VENTOLIN [Concomitant]
     Active Substance: ALBUTEROL SULFATE
     Indication: Product used for unknown indication
     Dosage: VENTOLIN? (SALBUTAMOL) 0.1MG BEI BEDARF INHALATION ; AS NECESSARY
     Route: 055
  12. FLUTICASONE FUROATE [Concomitant]
     Active Substance: FLUTICASONE FUROATE
     Indication: Product used for unknown indication
     Dosage: AVAMYS? NASENSPRAY (FLUTICASON) 2-0-0-0, NASAL
     Route: 045
  13. MOMETASONE FUROATE [Concomitant]
     Active Substance: MOMETASONE FUROATE
     Indication: Product used for unknown indication
     Dosage: MOMETASON NASENSPRAY 2-0-0-0, NASAL, IN RESERVE
     Route: 045
  14. TOPSYM [Concomitant]
     Indication: Product used for unknown indication
     Dosage: TOPSYM? GEL (FLUCINONID) 1-0-1-0, TOPISCH, NICHT BEKANNT OB BIS AUF WEITERES
     Route: 048
  15. ZOMIG [Concomitant]
     Active Substance: ZOLMITRIPTAN
     Indication: Product used for unknown indication
     Dosage: ZOMIG? (ZOLMITRIPTAN) 2.5MG, GESTOPPT AM 25.05.2022, AM 28.05.2022 WIEDERBEGINN IN RESERVE
     Route: 048
     Dates: end: 20220525
  16. ZOMIG [Concomitant]
     Active Substance: ZOLMITRIPTAN
     Dosage: ZOMIG? (ZOLMITRIPTAN) 2.5MG, GESTOPPT AM 25.05.2022, AM 28.05.2022 WIEDERBEGINN IN RESERVE
     Route: 048
     Dates: start: 20220528
  17. ACTIVATED CHARCOAL\DIMETHICONE [Concomitant]
     Active Substance: ACTIVATED CHARCOAL\DIMETHICONE
     Indication: Product used for unknown indication
     Dosage: FLATULEX? (SIMETICON) 42MG, GESTOPPT AM 25.05.2022, AM 28.05.2022 WIEDERBEGINN IN RESERVE ; AS NE...
     Route: 048
     Dates: end: 20220525
  18. ACTIVATED CHARCOAL\DIMETHICONE [Concomitant]
     Active Substance: ACTIVATED CHARCOAL\DIMETHICONE
     Dosage: FLATULEX? (SIMETICON) 42MG, GESTOPPT AM 25.05.2022, AM 28.05.2022 WIEDERBEGINN IN RESERVE ; AS NE...
     Route: 048
     Dates: start: 20220528
  19. HERBALS [Concomitant]
     Active Substance: HERBALS
     Indication: Product used for unknown indication
     Dosage: IBEROGAST? (MITTEL GEGEN VERDAUUNGSBESCHWERDEN, PFLANZLICH) GESTOPPT AM 25.05.2022, AM 28.05.2022...
     Route: 048
     Dates: end: 20220525
  20. HERBALS [Concomitant]
     Active Substance: HERBALS
     Dosage: IBEROGAST? (MITTEL GEGEN VERDAUUNGSBESCHWERDEN, PFLANZLICH) GESTOPPT AM 25.05.2022, AM 28.05.2022...
     Route: 048
     Dates: start: 20220528
  21. NABIXIMOLS [Concomitant]
     Active Substance: NABIXIMOLS
     Indication: Product used for unknown indication
     Dosage: SATIVEX? (CANNABIDIOL) 2.7MG/1 DOSIS GESTOPPT AM 25.05.2022, AM 28.05.2022 WIEDERBEGINN IN RESERVE
     Route: 048
     Dates: end: 20220525
  22. NABIXIMOLS [Concomitant]
     Active Substance: NABIXIMOLS
     Dosage: SATIVEX? (CANNABIDIOL) 2.7MG/1 DOSIS GESTOPPT AM 25.05.2022, AM 28.05.2022 WIEDERBEGINN IN RESERV...
     Route: 048
     Dates: start: 20220528

REACTIONS (3)
  - Polydipsia [Recovering/Resolving]
  - Dry mouth [Recovering/Resolving]
  - Pancytopenia [Unknown]

NARRATIVE: CASE EVENT DATE: 20220401
